FAERS Safety Report 10044290 (Version 1)
Quarter: 2014Q1

REPORT INFORMATION
  Report Type: Spontaneous
  Country: US (occurrence: US)
  Receive Date: 20140328
  Receipt Date: 20140328
  Transmission Date: 20141002
  Serious: Yes (Other)
  Sender: FDA-Public Use
  Company Number: US-ALLERGAN-1405658US

PATIENT
  Sex: 0

DRUGS (6)
  1. BOTOX [Suspect]
     Indication: SKIN WRINKLING
     Dosage: UNK UNK, SINGLE
     Dates: start: 20140225, end: 20140225
  2. BOTOX [Suspect]
     Indication: SKIN WRINKLING
  3. BOTOX [Suspect]
     Indication: SKIN WRINKLING
  4. BOTOX [Suspect]
     Indication: SKIN WRINKLING
  5. BOTOX [Suspect]
     Indication: SKIN WRINKLING
  6. JUVEDERM ULTRA XC [Suspect]
     Dosage: 0.8 ML, UNK
     Dates: start: 20140225, end: 20140225

REACTIONS (7)
  - Necrosis [Unknown]
  - Skin discolouration [Unknown]
  - Skin disorder [Unknown]
  - Wrong technique in drug usage process [Unknown]
  - Off label use [Unknown]
  - Scar [Unknown]
  - Erythema [Unknown]
